FAERS Safety Report 7357404-7 (Version None)
Quarter: 2011Q1

REPORT INFORMATION
  Report Type: 
  Country: None (occurrence: None)
  Receive Date: 20110308
  Receipt Date: 20110218
  Transmission Date: 20110831
  Serious: Yes (Death, Hospitalization, Other)
  Sender: FDA-Public Use
  Company Number: 2011P1004654

PATIENT
  Age: 66 Year
  Sex: Female

DRUGS (1)
  1. FENTANYL-25 [Suspect]
     Indication: OROPHARYNGEAL BLISTERING
     Dates: start: 20100803

REACTIONS (4)
  - UNRESPONSIVE TO STIMULI [None]
  - HYPOXIC-ISCHAEMIC ENCEPHALOPATHY [None]
  - INJURY [None]
  - PRODUCT QUALITY ISSUE [None]
